FAERS Safety Report 21466071 (Version 1)
Quarter: 2022Q4

REPORT INFORMATION
  Report Type: Report from Study
  Country: US (occurrence: US)
  Receive Date: 20221017
  Receipt Date: 20221017
  Transmission Date: 20230113
  Serious: Yes (Other)
  Sender: FDA-Public Use
  Company Number: US-BIOVITRUM-2022US08612

PATIENT
  Sex: Female

DRUGS (2)
  1. KINERET [Suspect]
     Active Substance: ANAKINRA
     Indication: Rheumatoid arthritis
     Dates: start: 201904
  2. KINERET [Suspect]
     Active Substance: ANAKINRA
     Dates: start: 20220615

REACTIONS (5)
  - B-cell aplasia [Unknown]
  - Sinusitis [Unknown]
  - White blood cell count decreased [Unknown]
  - Injection site pain [Unknown]
  - Product dose omission issue [Unknown]
